FAERS Safety Report 13245217 (Version 2)
Quarter: 2017Q2

REPORT INFORMATION
  Report Type: Spontaneous
  Country: FR (occurrence: FR)
  Receive Date: 20170217
  Receipt Date: 20170410
  Transmission Date: 20170830
  Serious: Yes (Death, Life-Threatening, Hospitalization, Disabling, Other)
  Sender: FDA-Public Use
  Company Number: FR-PFIZER INC-2017013071

PATIENT
  Age: 86 Year
  Sex: Female

DRUGS (11)
  1. SOLU-MEDROL [Suspect]
     Active Substance: METHYLPREDNISOLONE SODIUM SUCCINATE
     Dosage: 60 MG, CYCLIC
     Route: 042
     Dates: start: 20161028, end: 20161028
  2. FLUOROURACILE ACCORD [Suspect]
     Active Substance: FLUOROURACIL
     Indication: ADENOCARCINOMA OF COLON
     Dosage: 3984 MG, CYCLIC
     Route: 042
     Dates: start: 20161028, end: 20161029
  3. KARDEGIC [Concomitant]
     Active Substance: ASPIRIN LYSINE
     Dosage: 75 MG, 1X/DAY
     Route: 048
  4. METFORMINE [Concomitant]
     Active Substance: METFORMIN HYDROCHLORIDE
     Dosage: 1000 MG, 2X/DAY
     Route: 048
     Dates: end: 20161029
  5. CRESTOR [Concomitant]
     Active Substance: ROSUVASTATIN CALCIUM
     Dosage: 10 MG, 1X/DAY
     Route: 048
  6. FLUOROURACILE ACCORD [Suspect]
     Active Substance: FLUOROURACIL
     Indication: MALIGNANT PERITONEAL NEOPLASM
  7. MONOTILDIEM [Concomitant]
     Active Substance: DILTIAZEM
     Dosage: 300 MG, 1X/DAY
     Route: 048
  8. NISISCO [Concomitant]
     Active Substance: HYDROCHLOROTHIAZIDE\VALSARTAN
     Dosage: 1 DF, 1X/DAY
     Route: 048
  9. ELVORINE [Suspect]
     Active Substance: LEUCOVORIN CALCIUM
     Indication: COLON CANCER
     Dosage: 332 MG, CYCLIC
     Route: 042
     Dates: start: 20161028, end: 20161028
  10. FLUOROURACILE ACCORD [Suspect]
     Active Substance: FLUOROURACIL
     Indication: METASTASES TO LIVER
  11. ZOPHREN [Suspect]
     Active Substance: ONDANSETRON
     Dosage: 8 MG, CYCLIC
     Route: 048
     Dates: start: 20161028, end: 20161028

REACTIONS (10)
  - Altered state of consciousness [Fatal]
  - Somnolence [Fatal]
  - Hypoxia [Fatal]
  - Coma [Fatal]
  - Acute kidney injury [Fatal]
  - Hyperlactacidaemia [Fatal]
  - Ammonia increased [Fatal]
  - Vomiting [Fatal]
  - Coagulation factor V level decreased [Fatal]
  - Nausea [Unknown]

NARRATIVE: CASE EVENT DATE: 20161028
